FAERS Safety Report 22209324 (Version 2)
Quarter: 2023Q2

REPORT INFORMATION
  Report Type: Spontaneous
  Country: IT (occurrence: IT)
  Receive Date: 20230413
  Receipt Date: 20230510
  Transmission Date: 20230722
  Serious: Yes (Hospitalization, Other)
  Sender: FDA-Public Use
  Company Number: IT-CELLTRION INC.-2023IT007622

PATIENT

DRUGS (2)
  1. RITUXIMAB [Suspect]
     Active Substance: RITUXIMAB
     Indication: Rheumatoid arthritis
     Dosage: 2 INJECTIONS (1000 MG INTRAVENOUS, TWO WEEKS APART)
     Route: 042
     Dates: start: 2019
  2. RITUXIMAB [Suspect]
     Active Substance: RITUXIMAB
     Dosage: 2 INJECTIONS (1000 MG INTRAVENOUS, TWO WEEKS APART)
     Route: 042
     Dates: start: 202002

REACTIONS (3)
  - Cell-mediated immune deficiency [Recovered/Resolved]
  - COVID-19 [Recovered/Resolved]
  - COVID-19 pneumonia [Recovered/Resolved]
